FAERS Safety Report 17840060 (Version 3)
Quarter: 2021Q1

REPORT INFORMATION
  Report Type: Spontaneous
  Country: US (occurrence: US)
  Receive Date: 20200529
  Receipt Date: 20210122
  Transmission Date: 20210419
  Serious: Yes (Hospitalization)
  Sender: FDA-Public Use
  Company Number: US-SUNOVION-2020SUN001585

PATIENT
  Age: 68 Year
  Sex: Female

DRUGS (2)
  1. BROVANA [Suspect]
     Active Substance: ARFORMOTEROL TARTRATE
     Dosage: 15 ?G/2ML BID
     Route: 055
     Dates: start: 2019
  2. BROVANA [Suspect]
     Active Substance: ARFORMOTEROL TARTRATE
     Dosage: 15 ?G/2ML BID
     Route: 055
     Dates: start: 202001

REACTIONS (10)
  - Dyspnoea [Unknown]
  - Therapy cessation [Unknown]
  - Stress [Unknown]
  - Frustration tolerance decreased [Unknown]
  - Treatment noncompliance [Unknown]
  - Condition aggravated [Unknown]
  - Feeling abnormal [Unknown]
  - Lung disorder [Unknown]
  - Chest pain [Not Recovered/Not Resolved]
  - Poor quality sleep [Unknown]
